FAERS Safety Report 9947803 (Version 1)
Quarter: 2014Q1

REPORT INFORMATION
  Report Type: Report from Study
  Country: US (occurrence: US)
  Receive Date: 20140303
  Receipt Date: 20140303
  Transmission Date: 20141002
  Serious: No
  Sender: FDA-Public Use
  Company Number: US-ABBVIE-13P-163-1064680-00

PATIENT
  Age: 44 Year
  Sex: Female

DRUGS (4)
  1. HUMIRA [Suspect]
     Indication: CROHN^S DISEASE
     Dates: start: 201102
  2. ATIVAN [Concomitant]
     Indication: ANXIETY
     Dosage: 0.5 MG AS REQUIRED (USUALLY 1 DAILY)
  3. MULTIVITAMIN [Concomitant]
  4. EFFEXOR [Concomitant]
     Indication: DEPRESSION
     Dosage: 225 MG DAILY

REACTIONS (3)
  - Myalgia [Not Recovered/Not Resolved]
  - Arthralgia [Not Recovered/Not Resolved]
  - Nasopharyngitis [Unknown]
